FAERS Safety Report 7040216-1 (Version None)
Quarter: 2010Q4

REPORT INFORMATION
  Report Type: 
  Country: None (occurrence: None)
  Receive Date: 20101012
  Receipt Date: 20100929
  Transmission Date: 20110411
  Serious: Yes (Life-Threatening)
  Sender: FDA-Public Use
  Company Number: ES-MYLANLABS-2010S1018316

PATIENT
  Age: 18 Year
  Sex: Male

DRUGS (1)
  1. BACLOFEN [Suspect]
     Indication: SUICIDE ATTEMPT
     Dosage: INGESTED 60 TABLETS
     Route: 048

REACTIONS (5)
  - COMA [None]
  - INTENTIONAL OVERDOSE [None]
  - RHABDOMYOLYSIS [None]
  - SELF-MEDICATION [None]
  - SUICIDE ATTEMPT [None]
